FAERS Safety Report 5059712-1 (Version None)
Quarter: 2006Q3

REPORT INFORMATION
  Report Type: 
  Country: None (occurrence: None)
  Receive Date: 20060724
  Receipt Date: 20060714
  Transmission Date: 20061208
  Serious: Yes (Hospitalization)
  Sender: FDA-Public Use
  Company Number: US-ROCHE-455820

PATIENT
  Age: 39 Year
  Sex: Male
  Weight: 83.5 kg

DRUGS (6)
  1. PEGASYS [Suspect]
     Route: 058
     Dates: start: 20060213
  2. COPEGUS [Suspect]
     Dosage: DOSAGE REPORTED AS 3AM/ 3PM
     Route: 048
     Dates: start: 20060213
  3. VERAPAMIL [Concomitant]
     Indication: HYPERTENSION
     Dosage: FORM REPORTED AS CAP
     Route: 048
  4. MIDRIN [Concomitant]
     Indication: HEADACHE
     Route: 048
  5. DEPAKOTE [Concomitant]
     Indication: HEADACHE
     Route: 048
  6. PREVACID [Concomitant]

REACTIONS (4)
  - CORONARY ARTERY OCCLUSION [None]
  - FATIGUE [None]
  - PLATELET COUNT DECREASED [None]
  - PROTEIN TOTAL DECREASED [None]
